FAERS Safety Report 14243488 (Version 11)
Quarter: 2020Q2

REPORT INFORMATION
  Report Type: Report from Study
  Country: GB (occurrence: GB)
  Receive Date: 20171201
  Receipt Date: 20200619
  Transmission Date: 20200713
  Serious: Yes (Hospitalization, Other)
  Sender: FDA-Public Use
  Company Number: GB-BRISTOL-MYERS SQUIBB COMPANY-BMS-2017-105151

PATIENT
  Sex: Female

DRUGS (3)
  1. CODEINE [Concomitant]
     Active Substance: CODEINE
     Indication: PRODUCT USED FOR UNKNOWN INDICATION
     Route: 065
  2. PARACETAMOL [Concomitant]
     Active Substance: ACETAMINOPHEN
     Indication: PRODUCT USED FOR UNKNOWN INDICATION
     Dosage: UNK
     Route: 065
  3. ABATACEPT [Suspect]
     Active Substance: ABATACEPT
     Indication: RHEUMATOID ARTHRITIS
     Dosage: 125 MILLIGRAM, QWK
     Route: 058
     Dates: start: 20170808, end: 20191028

REACTIONS (14)
  - Infection [Recovered/Resolved]
  - Condition aggravated [Unknown]
  - Headache [Unknown]
  - Respiration abnormal [Unknown]
  - Dyspepsia [Unknown]
  - Lower respiratory tract infection [Unknown]
  - Product dose omission [Unknown]
  - Muscle spasms [Unknown]
  - Malaise [Unknown]
  - Muscle tightness [Unknown]
  - Rheumatoid arthritis [Unknown]
  - Dermatitis [Unknown]
  - Gingival pain [Unknown]
  - Glossodynia [Unknown]
